FAERS Safety Report 4938627-0 (Version None)
Quarter: 2006Q1

REPORT INFORMATION
  Report Type: 
  Country: None (occurrence: None)
  Receive Date: 20060306
  Receipt Date: 20060220
  Transmission Date: 20060701
  Serious: No
  Sender: FDA-Public Use
  Company Number: US200511001718

PATIENT
  Age: 52 Year
  Sex: Male
  Weight: 99.3 kg

DRUGS (2)
  1. CYMBALTA [Suspect]
     Indication: ANXIETY
     Dosage: 60 MG,
     Dates: start: 20050908, end: 20051008
  2. QUINAPRIL HCL [Concomitant]

REACTIONS (2)
  - ALANINE AMINOTRANSFERASE INCREASED [None]
  - ASPARTATE AMINOTRANSFERASE INCREASED [None]
